FAERS Safety Report 14534041 (Version 4)
Quarter: 2019Q2

REPORT INFORMATION
  Report Type: Spontaneous
  Country: US (occurrence: US)
  Receive Date: 20180215
  Receipt Date: 20190430
  Transmission Date: 20190711
  Serious: No
  Sender: FDA-Public Use
  Company Number: US-PFIZER INC-2018067291

PATIENT
  Sex: Male

DRUGS (9)
  1. ATIVAN [Suspect]
     Active Substance: LORAZEPAM
     Dosage: 0.5 MG, 1X/DAY TO BE TAKEN AT THE EVENING HOUR OF EACH DAY (APPROXIMATELY 9 PM)
  2. VIMPAT [Suspect]
     Active Substance: LACOSAMIDE
     Indication: SEIZURE
     Dosage: 200 MG, 2X/DAY (200 MG TABLET IN THE MORNING AND 200 MG AT NIGHT)
     Route: 048
     Dates: start: 201612
  3. SIMVASTATIN. [Concomitant]
     Active Substance: SIMVASTATIN
     Dosage: UNK
     Dates: start: 2004
  4. ATIVAN [Suspect]
     Active Substance: LORAZEPAM
     Indication: SEIZURE
     Dosage: 0.5 MG, 2X/DAY (0.5 MG TABLET IN THE MORNING AND 0.5 MG TABLET AT NIGHT)
     Route: 048
     Dates: start: 201705
  5. TAMSULOSIN [Concomitant]
     Active Substance: TAMSULOSIN
     Dosage: UNK
     Dates: start: 2011
  6. SERTRALINE [Concomitant]
     Active Substance: SERTRALINE HYDROCHLORIDE
     Dosage: UNK
     Dates: start: 2000
  7. DILANTIN [Suspect]
     Active Substance: PHENYTOIN
     Dosage: 100 MG, 2X/DAY
     Dates: start: 1997
  8. METFORMIN [Concomitant]
     Active Substance: METFORMIN HYDROCHLORIDE
     Dosage: UNK
     Dates: start: 2011, end: 2019
  9. DILANTIN [Suspect]
     Active Substance: PHENYTOIN
     Indication: SEIZURE
     Dosage: 200 MG, 2X/DAY (200 MG CAPSULES IN THE MORNING AND 200 MG AT NIGHT)
     Route: 048

REACTIONS (2)
  - Cerebral disorder [Unknown]
  - Therapeutic product effect incomplete [Unknown]
